FAERS Safety Report 9336875 (Version 1)
Quarter: 2013Q2

REPORT INFORMATION
  Report Type: Spontaneous
  Country: US (occurrence: US)
  Receive Date: 20130607
  Receipt Date: 20130607
  Transmission Date: 20140414
  Serious: Yes (Other)
  Sender: FDA-Public Use
  Company Number: US-BAYER-2013-066251

PATIENT
  Sex: Female

DRUGS (13)
  1. BAYER GENUINE ASPIRIN ORIGINAL STRENGTH [Suspect]
     Dosage: UNK
  2. DEMEDEX [Concomitant]
  3. VITAMIN D [Concomitant]
  4. PLAVIX [Concomitant]
  5. PROTONIX [Concomitant]
     Dosage: 40 MG, QD
     Route: 048
  6. ALLOPURINOL [Concomitant]
  7. NITROGLYCERIN [Concomitant]
  8. PRAVACOL [Concomitant]
  9. COREG [Concomitant]
  10. ZAROXOLYN [Concomitant]
  11. LEVOXYL [Concomitant]
  12. MICRO-K [Concomitant]
  13. IMDUR [Concomitant]

REACTIONS (1)
  - Gastric haemorrhage [None]
